FAERS Safety Report 4983762-4 (Version None)
Quarter: 2006Q1

REPORT INFORMATION
  Report Type: 
  Country: None (occurrence: None)
  Receive Date: 20060302
  Receipt Date: 20050119
  Transmission Date: 20060701
  Serious: No
  Sender: FDA-Public Use
  Company Number: 212461

PATIENT
  Age: 13 Year
  Sex: Male

DRUGS (2)
  1. NUTROPIN [Suspect]
     Dosage: SEE IMAGE
     Route: 058
     Dates: start: 20040210, end: 20041208
  2. NUTROPIN [Suspect]
     Dosage: SEE IMAGE
     Route: 058
     Dates: start: 20041209, end: 20050117

REACTIONS (1)
  - EPIPHYSIOLYSIS [None]
